FAERS Safety Report 24281468 (Version 1)
Quarter: 2024Q3

REPORT INFORMATION
  Report Type: Spontaneous
  Country: ES (occurrence: ES)
  Receive Date: 20240904
  Receipt Date: 20240904
  Transmission Date: 20241017
  Serious: No
  Sender: UCB
  Company Number: ES-UCBSA-2024044496

PATIENT
  Sex: Male

DRUGS (1)
  1. NEUPRO [Suspect]
     Active Substance: ROTIGOTINE
     Indication: Product used for unknown indication
     Dosage: 4 MILLIGRAM, UNK
     Route: 062

REACTIONS (2)
  - Product adhesion issue [Unknown]
  - Product availability issue [Unknown]
